FAERS Safety Report 7533973-9 (Version None)
Quarter: 2011Q2

REPORT INFORMATION
  Report Type: 
  Country: None (occurrence: None)
  Receive Date: 20110608
  Receipt Date: 20060711
  Transmission Date: 20111010
  Serious: Yes (Other)
  Sender: FDA-Public Use
  Company Number: PHFR2006IE02207

PATIENT
  Sex: Female

DRUGS (4)
  1. CLOZAPINE [Suspect]
     Dosage: 225 MG, QD
     Route: 048
     Dates: start: 20060601
  2. ARIPIPRAZOLE [Concomitant]
  3. FLUOXETINE HCL [Concomitant]
  4. CLOZAPINE [Suspect]
     Indication: SCHIZOPHRENIA
     Dosage: 200 MG, QD
     Route: 048
     Dates: start: 19980901

REACTIONS (5)
  - PALPITATIONS [None]
  - MICTURITION URGENCY [None]
  - SINUS TACHYCARDIA [None]
  - URINARY RETENTION [None]
  - ANXIETY [None]
